FAERS Safety Report 9125462 (Version 1)
Quarter: 2013Q1

REPORT INFORMATION
  Report Type: Spontaneous
  Country: JP (occurrence: JP)
  Receive Date: 20130227
  Receipt Date: 20130227
  Transmission Date: 20140127
  Serious: Yes (Hospitalization)
  Sender: FDA-Public Use
  Company Number: JP-GLAXOSMITHKLINE-B0861127A

PATIENT
  Age: 56 None
  Sex: Male
  Weight: 72 kg

DRUGS (6)
  1. LAMICTAL [Suspect]
     Indication: BIPOLAR DISORDER
     Dosage: 25MG PER DAY
     Route: 048
     Dates: start: 20121206, end: 20130110
  2. LIMAS [Concomitant]
     Dosage: 800MG PER DAY
     Route: 048
  3. SEROQUEL [Concomitant]
     Dosage: 25MG PER DAY
     Route: 048
  4. THYRADIN S [Concomitant]
     Dosage: 50MCG PER DAY
     Route: 048
  5. DEPAS [Concomitant]
     Route: 048
     Dates: end: 20130115
  6. ERISPAN [Concomitant]
     Route: 048
     Dates: end: 20130115

REACTIONS (10)
  - Drug reaction with eosinophilia and systemic symptoms [Recovering/Resolving]
  - Hepatic function abnormal [Recovering/Resolving]
  - Rash generalised [Unknown]
  - Pyrexia [Unknown]
  - Skin disorder [Unknown]
  - Erythema [Unknown]
  - Papule [Unknown]
  - Confusional state [Unknown]
  - Jaundice [Unknown]
  - Decreased appetite [Unknown]
